FAERS Safety Report 5019866-X (Version None)
Quarter: 2006Q2

REPORT INFORMATION
  Report Type: 
  Country: None (occurrence: None)
  Receive Date: 20060607
  Receipt Date: 20060523
  Transmission Date: 20061013
  Serious: Yes (Other)
  Sender: FDA-Public Use
  Company Number: DEWYE646923MAY06

PATIENT
  Age: 56 Year
  Sex: Female

DRUGS (3)
  1. ENBREL [Suspect]
     Indication: ANKYLOSING SPONDYLITIS
     Route: 058
     Dates: start: 20060401
  2. UNSPECIFIED THYROID MEDICATION [Concomitant]
  3. ISOKET [Concomitant]

REACTIONS (4)
  - ANGINA PECTORIS [None]
  - DYSPHEMIA [None]
  - PALPITATIONS [None]
  - TIC [None]
